FAERS Safety Report 5609296-1 (Version None)
Quarter: 2008Q1

REPORT INFORMATION
  Report Type: 
  Country: None (occurrence: None)
  Receive Date: 20080131
  Receipt Date: 20080123
  Transmission Date: 20080703
  Serious: Yes (Hospitalization, Other)
  Sender: FDA-Public Use
  Company Number: US-MERCK-0707USA00950

PATIENT
  Age: 39 Year
  Sex: Female
  Weight: 57 kg

DRUGS (10)
  1. FOSAMAX [Suspect]
     Indication: OSTEOPENIA
     Route: 048
     Dates: start: 20000101, end: 20050801
  2. FOSAMAX [Suspect]
     Indication: OSTEOPOROSIS
     Route: 048
     Dates: start: 20000101, end: 20050801
  3. [THERAPY UNSPECIFIED] [Concomitant]
     Indication: HYPERTENSION
     Route: 065
     Dates: start: 20050901
  4. MESTINON [Concomitant]
     Indication: MYASTHENIA GRAVIS
     Route: 065
     Dates: start: 19970101
  5. PRILOSEC [Concomitant]
     Indication: GASTRIC ULCER
     Route: 065
     Dates: start: 19970101
  6. SYNTHROID [Concomitant]
     Indication: HYPOTHYROIDISM
     Route: 065
     Dates: start: 19970101
  7. CALCIUM (UNSPECIFIED) [Concomitant]
     Route: 065
  8. VITAMIN D (UNSPECIFIED) [Concomitant]
     Route: 065
  9. FORTEO [Concomitant]
     Route: 065
     Dates: start: 20051001
  10. ZOMETA [Concomitant]
     Route: 065
     Dates: start: 20050706

REACTIONS (28)
  - ABDOMINAL PAIN [None]
  - ANOSMIA [None]
  - ANXIETY [None]
  - ASPIRATION [None]
  - CHRONIC SINUSITIS [None]
  - DEPRESSION [None]
  - DERMATITIS ALLERGIC [None]
  - DRUG HYPERSENSITIVITY [None]
  - DRUG INEFFECTIVE [None]
  - DRUG INTOLERANCE [None]
  - DUODENAL ULCER [None]
  - DYSPHONIA [None]
  - EAR DISORDER [None]
  - EAR PAIN [None]
  - EPISTAXIS [None]
  - FOOT FRACTURE [None]
  - GASTROINTESTINAL DISORDER [None]
  - GASTROINTESTINAL ULCER [None]
  - HYPOKALAEMIA [None]
  - LEUKOPLAKIA ORAL [None]
  - LYME DISEASE [None]
  - OSTEOMYELITIS [None]
  - OSTEONECROSIS [None]
  - PAPILLARY THYROID CANCER [None]
  - PARALYSIS [None]
  - SINUSITIS [None]
  - SPINAL FRACTURE [None]
  - WRIST FRACTURE [None]
